FAERS Safety Report 16203521 (Version 4)
Quarter: 2019Q4

REPORT INFORMATION
  Report Type: Spontaneous
  Country: US (occurrence: US)
  Receive Date: 20190416
  Receipt Date: 20191030
  Transmission Date: 20200122
  Serious: No
  Sender: FDA-Public Use
  Company Number: US-LEXICON PHARMACEUTICALS, INC-19-1606-00358

PATIENT
  Sex: Male

DRUGS (14)
  1. TELOTRISTAT ETHYL [Suspect]
     Active Substance: TELOTRISTAT ETHYL
     Route: 048
     Dates: start: 201904, end: 201908
  2. TELOTRISTAT ETHYL [Suspect]
     Active Substance: TELOTRISTAT ETHYL
     Route: 048
     Dates: start: 201908
  3. FOSRENOL [Concomitant]
     Active Substance: LANTHANUM CARBONATE
  4. NIFEDIPINE. [Concomitant]
     Active Substance: NIFEDIPINE
  5. ULORIC [Concomitant]
     Active Substance: FEBUXOSTAT
  6. CARVEDILOL. [Concomitant]
     Active Substance: CARVEDILOL
  7. FERREX [Concomitant]
     Active Substance: FERRIC POLYSACCHARIDE COMPLEX
  8. POTASSIUM CHLORIDE. [Concomitant]
     Active Substance: POTASSIUM CHLORIDE
  9. CLOPIDOGREL BISULFATE. [Concomitant]
     Active Substance: CLOPIDOGREL BISULFATE
  10. ATORVASTATIN CALCIUM. [Concomitant]
     Active Substance: ATORVASTATIN CALCIUM
  11. TELOTRISTAT ETHYL [Suspect]
     Active Substance: TELOTRISTAT ETHYL
     Indication: NEUROENDOCRINE TUMOUR
     Route: 048
     Dates: start: 20190204, end: 201904
  12. FUROSEMIDE. [Concomitant]
     Active Substance: FUROSEMIDE
  13. ASPIRIN. [Concomitant]
     Active Substance: ASPIRIN
  14. AVAPRO [Concomitant]
     Active Substance: IRBESARTAN

REACTIONS (2)
  - Insomnia [Unknown]
  - Constipation [Unknown]

NARRATIVE: CASE EVENT DATE: 2019
